FAERS Safety Report 9486552 (Version 1)
Quarter: 2013Q3

REPORT INFORMATION
  Report Type: Spontaneous
  Country: GB (occurrence: None)
  Receive Date: 20130823
  Receipt Date: 20130823
  Transmission Date: 20140515
  Serious: Yes (Life-Threatening, Hospitalization, Other)
  Sender: FDA-Public Use
  Company Number: GER/UKI/13/0034093

PATIENT
  Age: 58 Year
  Sex: Female

DRUGS (5)
  1. OMEPRAZOLE [Suspect]
     Indication: ASTHMA
     Route: 048
     Dates: start: 20130307, end: 20130512
  2. OMEPRAZOLE [Suspect]
     Indication: COUGH
     Route: 048
     Dates: start: 20130307, end: 20130512
  3. OMEPRAZOLE [Suspect]
     Indication: GASTROOESOPHAGEAL REFLUX DISEASE
     Route: 048
     Dates: start: 20130307, end: 20130512
  4. BENDROFLUMETHIAZIDE (BENDROFLUMETHIAZIDE) [Concomitant]
  5. PERINDOPRIL (PERINDOPRIL  ERBUMINE) [Concomitant]

REACTIONS (3)
  - Tubulointerstitial nephritis [None]
  - Renal failure acute [None]
  - Urinary tract infection [None]
